FAERS Safety Report 8795703 (Version 2)
Quarter: 2012Q4

REPORT INFORMATION
  Report Type: 
  Country: US (occurrence: US)
  Receive Date: 20120920
  Receipt Date: 20121102
  Transmission Date: 20130627
  Serious: Yes (Hospitalization, Other)
  Sender: FDA-Public Use
  Company Number: US-BAYER-2012-097173

PATIENT
  Age: 26 Year
  Sex: Female
  Weight: 89.8 kg

DRUGS (3)
  1. YASMIN [Suspect]
     Indication: CONTRACEPTION
     Dosage: UNK
     Dates: start: 200811, end: 20110825
  2. CLARITIN [Concomitant]
  3. TYELENOL [Concomitant]

REACTIONS (7)
  - Deep vein thrombosis [None]
  - Pregnancy on oral contraceptive [None]
  - Mental disorder [None]
  - Pain in extremity [None]
  - Oedema peripheral [None]
  - Pain [None]
  - Injury [None]
